FAERS Safety Report 12562629 (Version 2)
Quarter: 2016Q3

REPORT INFORMATION
  Report Type: Spontaneous
  Country: PT (occurrence: PT)
  Receive Date: 20160715
  Receipt Date: 20160720
  Transmission Date: 20161109
  Serious: Yes (Other)
  Sender: FDA-Public Use
  Company Number: PT-ALLERGAN-1662527US

PATIENT
  Age: 51 Year
  Sex: Male

DRUGS (2)
  1. OZURDEX [Suspect]
     Active Substance: DEXAMETHASONE
     Indication: RENAL VEIN OCCLUSION
  2. OZURDEX [Suspect]
     Active Substance: DEXAMETHASONE
     Indication: MACULAR OEDEMA
     Dosage: 0.7 MG, SINGLE
     Route: 031
     Dates: start: 20160429, end: 20160429

REACTIONS (2)
  - Lens disorder [Recovered/Resolved]
  - Eye complication associated with device [Recovered/Resolved]

NARRATIVE: CASE EVENT DATE: 20160429
